FAERS Safety Report 7272132-4 (Version None)
Quarter: 2010Q4

REPORT INFORMATION
  Report Type: 
  Country: None (occurrence: None)
  Receive Date: 20101208
  Receipt Date: 20091030
  Transmission Date: 20110411
  Serious: Yes (Hospitalization)
  Sender: FDA-Public Use
  Company Number: RB-13964-2010

PATIENT
  Age: 22 Year
  Sex: Male

DRUGS (1)
  1. DELSYM [Suspect]
     Dosage: *THE PATIENT DRANK APPROXIMATELY 9 OUNCES ORAL)
     Route: 048
     Dates: start: 20091030

REACTIONS (2)
  - EUPHORIC MOOD [None]
  - OVERDOSE [None]
